FAERS Safety Report 4443576-0 (Version None)
Quarter: 2004Q3

REPORT INFORMATION
  Report Type: 
  Country: None (occurrence: None)
  Receive Date: 20040903
  Receipt Date: 20040903
  Transmission Date: 20050211
  Serious: No
  Sender: FDA-Public Use
  Company Number: None

PATIENT
  Age: 61 Year
  Sex: Male

DRUGS (1)
  1. MORPHINE SULFATE INJ [Suspect]
     Indication: PAIN
     Dosage: 4 MG IM ONCE
     Route: 030
     Dates: start: 20040506

REACTIONS (2)
  - RASH [None]
  - URTICARIA [None]
